FAERS Safety Report 6731961-3 (Version None)
Quarter: 2010Q2

REPORT INFORMATION
  Report Type: 
  Country: None (occurrence: None)
  Receive Date: 20100519
  Receipt Date: 20100505
  Transmission Date: 20101027
  Serious: Yes (Death)
  Sender: FDA-Public Use
  Company Number: IT-AMGEN-QUU410593

PATIENT
  Sex: Male

DRUGS (5)
  1. ENBREL [Suspect]
     Indication: PSORIATIC ARTHROPATHY
     Route: 058
     Dates: start: 20100115, end: 20100401
  2. ENBREL [Suspect]
     Indication: PSORIASIS
  3. OXYCODONE HCL AND ACETAMINOPHEN [Concomitant]
     Route: 048
  4. LANSOX [Concomitant]
     Route: 048
  5. GLIMEPIRIDE [Concomitant]
     Route: 048
     Dates: start: 20020101

REACTIONS (7)
  - ALANINE AMINOTRANSFERASE INCREASED [None]
  - ANAEMIA MACROCYTIC [None]
  - ASPARTATE AMINOTRANSFERASE INCREASED [None]
  - C-REACTIVE PROTEIN INCREASED [None]
  - COMPLETED SUICIDE [None]
  - GUN SHOT WOUND [None]
  - RED BLOOD CELL SEDIMENTATION RATE INCREASED [None]
